FAERS Safety Report 7438814-6 (Version None)
Quarter: 2011Q2

REPORT INFORMATION
  Report Type: 
  Country: None (occurrence: None)
  Receive Date: 20110426
  Receipt Date: 20110418
  Transmission Date: 20111010
  Serious: Yes (Other)
  Sender: FDA-Public Use
  Company Number: US-GENENTECH-316982

PATIENT
  Sex: Female

DRUGS (1)
  1. XOLAIR [Suspect]
     Indication: PRODUCT USED FOR UNKNOWN INDICATION

REACTIONS (6)
  - RESPIRATORY TRACT CONGESTION [None]
  - HEART RATE INCREASED [None]
  - WHEEZING [None]
  - FEELING JITTERY [None]
  - COUGH [None]
  - FLUSHING [None]
